FAERS Safety Report 9130231 (Version 3)
Quarter: 2013Q2

REPORT INFORMATION
  Report Type: Report from Study
  Country: US (occurrence: US)
  Receive Date: 20130228
  Receipt Date: 20130409
  Transmission Date: 20140414
  Serious: Yes (Hospitalization)
  Sender: FDA-Public Use
  Company Number: US-ABBOTT-13P-163-1053295-00

PATIENT
  Age: 43 Year
  Sex: Female
  Weight: 124.85 kg

DRUGS (7)
  1. LUPRON DEPOT [Suspect]
     Indication: MENORRHAGIA
     Dates: start: 201207
  2. LUPRON DEPOT [Suspect]
     Indication: MENOMETRORRHAGIA
  3. IBUPROFEN [Concomitant]
     Indication: PRODUCT USED FOR UNKNOWN INDICATION
     Dosage: UNKNOWN
  4. ANTACIDS [Concomitant]
     Indication: PRODUCT USED FOR UNKNOWN INDICATION
     Dosage: UNKNOWN
  5. OMEGA-3 [Concomitant]
     Indication: PRODUCT USED FOR UNKNOWN INDICATION
     Dosage: UNKNOWN
  6. INFINITOR [Concomitant]
     Indication: PRODUCT USED FOR UNKNOWN INDICATION
     Dosage: UNNOWN
     Dates: start: 20130218
  7. SUTENT [Concomitant]
     Indication: RENAL CELL CARCINOMA

REACTIONS (7)
  - Renal cell carcinoma [Unknown]
  - Fatigue [Unknown]
  - Feeling of body temperature change [Unknown]
  - Hot flush [Unknown]
  - Hot flush [Unknown]
  - Hot flush [Unknown]
  - Off label use [Unknown]
